FAERS Safety Report 17855564 (Version 1)
Quarter: 2020Q2

REPORT INFORMATION
  Report Type: Spontaneous
  Country: KR (occurrence: KR)
  Receive Date: 20200603
  Receipt Date: 20200603
  Transmission Date: 20200714
  Serious: Yes (Death)
  Sender: FDA-Public Use
  Company Number: KR-GUERBET-KR-20200060

PATIENT
  Age: 40 Year
  Sex: Female
  Weight: 110 kg

DRUGS (1)
  1. OPTIRAY 320 [Suspect]
     Active Substance: IOVERSOL
     Indication: COMPUTERISED TOMOGRAM ABDOMEN
     Route: 065
     Dates: start: 20200525, end: 20200525

REACTIONS (2)
  - Dyspnoea [Fatal]
  - Pallor [Fatal]

NARRATIVE: CASE EVENT DATE: 20200525
